FAERS Safety Report 4392245-4 (Version None)
Quarter: 2004Q3

REPORT INFORMATION
  Report Type: 
  Country: None (occurrence: None)
  Receive Date: 20040702
  Receipt Date: 20040628
  Transmission Date: 20050211
  Serious: Yes (Hospitalization, Other)
  Sender: FDA-Public Use
  Company Number: 2004-06-2087

PATIENT
  Sex: Male
  Weight: 92.9874 kg

DRUGS (1)
  1. PEG-INTRON [Suspect]
     Indication: HEPATITIS C
     Dosage: 150 MCG SUBCUTANEOUS
     Route: 058
     Dates: start: 20021122, end: 20030201

REACTIONS (19)
  - ADRENAL MASS [None]
  - COUGH [None]
  - EXCORIATION [None]
  - HEPATIC CIRRHOSIS [None]
  - HEPATIC MASS [None]
  - HEPATIC STEATOSIS [None]
  - HEPATOMEGALY [None]
  - INFECTION [None]
  - INJECTION SITE DISCOMFORT [None]
  - INJECTION SITE PRURITUS [None]
  - LUNG NEOPLASM [None]
  - LYMPHADENOPATHY [None]
  - LYMPHOCYTIC INFILTRATION [None]
  - RASH ERYTHEMATOUS [None]
  - RASH MACULO-PAPULAR [None]
  - SINUS CONGESTION [None]
  - SKIN HYPERPIGMENTATION [None]
  - SPLENOMEGALY [None]
  - VASCULITIS [None]
